FAERS Safety Report 7971445-8 (Version None)
Quarter: 2011Q4

REPORT INFORMATION
  Report Type: 
  Country: None (occurrence: None)
  Receive Date: 20111212
  Receipt Date: 20111206
  Transmission Date: 20120403
  Serious: Yes (Hospitalization, Other)
  Sender: FDA-Public Use
  Company Number: US-PFIZER INC-2009314324

PATIENT
  Sex: Female

DRUGS (3)
  1. PHENYTOIN [Suspect]
     Indication: TRIGEMINAL NEURALGIA
     Dosage: 100 MG, 2-3 TIMES DAILY
     Dates: start: 20090624
  2. DILANTIN-125 [Suspect]
     Indication: TRIGEMINAL NEURALGIA
     Dosage: 200 MG, 3X/DAY
     Dates: start: 20090501
  3. LISINOPRIL AND HYDROCHLOROTHIAZIDE [Concomitant]
     Dosage: 20/ 12.5MG DAILY

REACTIONS (1)
  - STEVENS-JOHNSON SYNDROME [None]
